FAERS Safety Report 8402224-5 (Version None)
Quarter: 2012Q2

REPORT INFORMATION
  Report Type: 
  Country: None (occurrence: None)
  Receive Date: 20120601
  Receipt Date: 20120530
  Transmission Date: 20120825
  Serious: Yes (Hospitalization)
  Sender: FDA-Public Use
  Company Number: JP-EISAI INC-E2020-10864-SPO-JP

PATIENT
  Age: 80 Year
  Sex: Male

DRUGS (5)
  1. UNISIA (CANDESARTAN CILEXETIL AMLODIPINE BESILATE COMBINED DRUG) [Concomitant]
  2. ASPIRIN [Concomitant]
     Route: 048
  3. DEPAS [Concomitant]
     Route: 048
     Dates: end: 20120401
  4. YOKUKANSAN [Concomitant]
     Route: 048
  5. ARICEPT [Suspect]
     Route: 048
     Dates: start: 20120401, end: 20120529

REACTIONS (2)
  - NEUROLEPTIC MALIGNANT SYNDROME [None]
  - RHABDOMYOLYSIS [None]
